FAERS Safety Report 9203183 (Version 1)
Quarter: 2013Q1

REPORT INFORMATION
  Report Type: Spontaneous
  Country: US (occurrence: None)
  Receive Date: 20120709
  Receipt Date: 20120709
  Transmission Date: 20140127
  Serious: Yes (Other)
  Sender: FDA-Public Use
  Company Number: PHHY2010US77089

PATIENT
  Age: 65 Year
  Sex: Male

DRUGS (3)
  1. GLEEVEC (IMATINIB) [Suspect]
     Indication: GASTRIC CANCER
     Route: 048
     Dates: start: 20101007, end: 20110517
  2. HYDROCHLOROTHIAZIDE (HYDROCHLOROTHIAZIDE) [Concomitant]
  3. POTASSIUM (POTASSIUM) [Concomitant]

REACTIONS (6)
  - Blood creatinine increased [None]
  - Skin hypopigmentation [None]
  - Oedema peripheral [None]
  - Swelling face [None]
  - Fatigue [None]
  - Hypotension [None]
